FAERS Safety Report 18774487 (Version 1)
Quarter: 2021Q1

REPORT INFORMATION
  Report Type: Spontaneous
  Country: ES (occurrence: ES)
  Receive Date: 20210122
  Receipt Date: 20210122
  Transmission Date: 20210419
  Serious: Yes (Hospitalization, Disabling, Other)
  Sender: FDA-Public Use
  Company Number: ES-AMGEN-ESPSP2021008921

PATIENT
  Age: 68 Year
  Sex: Female

DRUGS (6)
  1. SECALIP [Concomitant]
     Active Substance: FENOFIBRATE
     Route: 048
  2. ORFIDAL [Concomitant]
     Active Substance: LORAZEPAM
     Route: 048
  3. PROLIA [Suspect]
     Active Substance: DENOSUMAB
     Indication: OSTEOPOROSIS
     Dosage: 60 MILLIGRAM, Q6MO
     Route: 058
     Dates: start: 201612, end: 202001
  4. PARACETAMOL [Concomitant]
     Active Substance: ACETAMINOPHEN
     Route: 048
  5. VACUNA ANTIGRIPAL [Concomitant]
  6. HIDROFEROL [Concomitant]
     Active Substance: CALCIFEDIOL
     Route: 048

REACTIONS (2)
  - Thoracic vertebral fracture [Not Recovered/Not Resolved]
  - Thoracic vertebral fracture [Recovering/Resolving]

NARRATIVE: CASE EVENT DATE: 20201224
